FAERS Safety Report 22050571 (Version 3)
Quarter: 2023Q2

REPORT INFORMATION
  Report Type: Report from Study
  Country: US (occurrence: US)
  Receive Date: 20230301
  Receipt Date: 20230626
  Transmission Date: 20230721
  Serious: Yes (Other)
  Sender: FDA-Public Use
  Company Number: US-002147023-NVSC2023US042099

PATIENT
  Age: 64 Year
  Sex: Female

DRUGS (1)
  1. ENTRESTO [Suspect]
     Active Substance: SACUBITRIL\VALSARTAN
     Indication: Cardiac failure
     Dosage: 1 DOSAGE FORM, BID (24/26 MG)
     Route: 048

REACTIONS (9)
  - Pulmonary congestion [Unknown]
  - Dyspnoea [Unknown]
  - Myocardial infarction [Unknown]
  - Chronic obstructive pulmonary disease [Unknown]
  - Ligament sprain [Unknown]
  - Joint swelling [Recovered/Resolved]
  - Bronchitis [Unknown]
  - Feeling abnormal [Unknown]
  - Weight increased [Unknown]

NARRATIVE: CASE EVENT DATE: 20230201
